FAERS Safety Report 11205497 (Version 1)
Quarter: 2015Q2

REPORT INFORMATION
  Report Type: Spontaneous
  Country: GB (occurrence: GB)
  Receive Date: 20150622
  Receipt Date: 20150622
  Transmission Date: 20150821
  Serious: Yes (Other)
  Sender: FDA-Public Use
  Company Number: GB-TEVA-570071ACC

PATIENT
  Age: 67 Year
  Sex: Female

DRUGS (2)
  1. METFORMIN [Suspect]
     Active Substance: METFORMIN HYDROCHLORIDE
  2. CLOZAPINE. [Interacting]
     Active Substance: CLOZAPINE
     Route: 048

REACTIONS (2)
  - Drug interaction [Unknown]
  - Antipsychotic drug level increased [Not Recovered/Not Resolved]
